FAERS Safety Report 7126324-5 (Version None)
Quarter: 2010Q4

REPORT INFORMATION
  Report Type: 
  Country: None (occurrence: None)
  Receive Date: 20101129
  Receipt Date: 20100901
  Transmission Date: 20110411
  Serious: No
  Sender: FDA-Public Use
  Company Number: A0878933A

PATIENT
  Age: 50 Year
  Sex: Female

DRUGS (4)
  1. DIGOXIN [Suspect]
     Dosage: 125MCG PER DAY
     Route: 048
     Dates: start: 19800101
  2. TOPROL-XL [Suspect]
     Dosage: 50MG TWICE PER DAY
     Route: 048
     Dates: start: 19800101
  3. MULTI-VITAMIN [Concomitant]
  4. CALCIUM [Concomitant]

REACTIONS (3)
  - ARRHYTHMIA [None]
  - DRUG INEFFECTIVE [None]
  - HEART RATE INCREASED [None]
